FAERS Safety Report 6374191-X (Version None)
Quarter: 2009Q3

REPORT INFORMATION
  Report Type: 
  Country: None (occurrence: None)
  Receive Date: 20090924
  Receipt Date: 20090615
  Transmission Date: 20100115
  Serious: No
  Sender: FDA-Public Use
  Company Number: US-ASTRAZENECA-2009UW15349

PATIENT
  Age: 46 Year
  Sex: Male
  Weight: 74.8 kg

DRUGS (3)
  1. SEROQUEL [Suspect]
     Indication: ANXIETY
     Dosage: 50 MG, ONCE OR TWICE A WEEK
     Route: 048
     Dates: start: 20090301
  2. ANTIHISTAMINE [Concomitant]
  3. HYDROCODONE [Concomitant]

REACTIONS (3)
  - ILL-DEFINED DISORDER [None]
  - INSOMNIA [None]
  - MUSCLE TWITCHING [None]
